FAERS Safety Report 14949948 (Version 1)
Quarter: 2018Q2

REPORT INFORMATION
  Report Type: Spontaneous
  Country: CN (occurrence: CN)
  Receive Date: 20180530
  Receipt Date: 20180530
  Transmission Date: 20180711
  Serious: Yes (Other)
  Sender: FDA-Public Use
  Company Number: CN-B.I. PHARMACEUTICALS,INC./RIDGEFIELD-2018-BI-028166

PATIENT
  Age: 68 Year
  Sex: Male

DRUGS (4)
  1. CEFTRIAXONE SODIUM AND TAZOBACTAM SODIUM [Suspect]
     Active Substance: CEFTRIAXONE SODIUM\TAZOBACTAM SODIUM
     Indication: CHRONIC OBSTRUCTIVE PULMONARY DISEASE
     Dates: start: 20180408, end: 20180408
  2. COMBIVENT [Suspect]
     Active Substance: ALBUTEROL SULFATE\IPRATROPIUM BROMIDE
     Indication: CHRONIC OBSTRUCTIVE PULMONARY DISEASE
     Route: 055
     Dates: start: 20180408, end: 20180408
  3. SODIUM CHLORIDE. [Concomitant]
     Active Substance: SODIUM CHLORIDE
     Dates: start: 20180408, end: 20180408
  4. SODIUM CHLORIDE. [Concomitant]
     Active Substance: SODIUM CHLORIDE
     Indication: DRUG THERAPY
     Route: 055
     Dates: start: 20180408, end: 20180408

REACTIONS (5)
  - Dyspnoea [None]
  - Palpitations [Recovered/Resolved]
  - Flushing [Recovered/Resolved]
  - Drug hypersensitivity [None]
  - Dyspnoea [Recovered/Resolved]

NARRATIVE: CASE EVENT DATE: 20180408
